FAERS Safety Report 9537329 (Version 1)
Quarter: 2013Q3

REPORT INFORMATION
  Report Type: Spontaneous
  Country: US (occurrence: None)
  Receive Date: 20130918
  Receipt Date: 20130918
  Transmission Date: 20140515
  Serious: Yes (Life-Threatening, Hospitalization)
  Sender: FDA-Public Use
  Company Number: None

PATIENT
  Age: 63 Year
  Sex: Female
  Weight: 71.22 kg

DRUGS (2)
  1. 5FU [Suspect]
     Indication: PROPHYLAXIS
     Dosage: 5FU
     Dates: start: 20130426, end: 20130428
  2. 5FU [Suspect]
     Indication: COLON CANCER
     Dosage: 5FU
     Dates: start: 20130426, end: 20130428

REACTIONS (3)
  - Cardiac arrest [None]
  - Pain in jaw [None]
  - Bruxism [None]
